FAERS Safety Report 6468277-9 (Version None)
Quarter: 2009Q4

REPORT INFORMATION
  Report Type: 
  Country: None (occurrence: None)
  Receive Date: 20091130
  Receipt Date: 20091110
  Transmission Date: 20100525
  Serious: Yes (Hospitalization)
  Sender: FDA-Public Use
  Company Number: 2009002631

PATIENT
  Age: 67 Year
  Sex: Female

DRUGS (6)
  1. ERLOTINIB HYDROCHLORIDE [Suspect]
     Indication: NON-SMALL CELL LUNG CANCER
     Dosage: (QD),ORAL
     Route: 048
     Dates: start: 20090602
  2. GEMCITABINE [Suspect]
     Indication: NON-SMALL CELL LUNG CANCER
     Dosage: (1.4 GM, QD), INTRAVENOUS
     Route: 042
     Dates: start: 20090519
  3. CARBOPLATIN                        (INJECTION FOR INFUSION) [Suspect]
     Indication: NON-SMALL CELL LUNG CANCER
     Dosage: (500 MG,QD),INTRAVENOUS
     Route: 042
     Dates: start: 20090519
  4. FERROUS SULFATE TAB [Concomitant]
  5. ASCORBIC ACID [Concomitant]
  6. MULTI-VITAMIN [Concomitant]

REACTIONS (2)
  - ANAEMIA [None]
  - FULL BLOOD COUNT DECREASED [None]
